FAERS Safety Report 5760796-3 (Version None)
Quarter: 2008Q2

REPORT INFORMATION
  Report Type: 
  Country: None (occurrence: None)
  Receive Date: 20080606
  Receipt Date: 20080529
  Transmission Date: 20081010
  Serious: Yes (Other)
  Sender: FDA-Public Use
  Company Number: BR-JNJFOC-20080600551

PATIENT
  Age: 29 Year
  Sex: Female
  Weight: 67 kg

DRUGS (1)
  1. ORTHO EVRA [Suspect]
     Indication: CONTRACEPTION

REACTIONS (6)
  - ERYTHEMA [None]
  - HEADACHE [None]
  - SKIN IRRITATION [None]
  - VISUAL FIELD DEFECT [None]
  - VOMITING [None]
  - WOUND [None]
